FAERS Safety Report 7797636 (Version 10)
Quarter: 2013Q4

REPORT INFORMATION
  Report Type: Report from Study
  Country: US (occurrence: US)
  Receive Date: 20110203
  Receipt Date: 20131022
  Transmission Date: 20140711
  Serious: Yes (Hospitalization, Other)
  Sender: FDA-Public Use
  Company Number: US-ACTELION-A-NJ2011-44253

PATIENT
  Age: 62 Year
  Sex: Female

DRUGS (26)
  1. TRACLEER [Suspect]
     Indication: PULMONARY ARTERIAL HYPERTENSION
     Dosage: 125 MG, UNK
     Route: 048
     Dates: start: 20080519
  2. TRACLEER [Suspect]
     Dosage: UNK
     Route: 048
     Dates: start: 2008, end: 200808
  3. REVATIO [Concomitant]
     Dosage: 40 MG, TID
     Dates: start: 2008
  4. TYVASO [Concomitant]
  5. ALBUTEROL [Concomitant]
     Dosage: UNK, QD
     Dates: start: 2008
  6. PROVENTIL [Concomitant]
     Dosage: UNK, QID
     Dates: start: 2008
  7. SYMBICORT [Concomitant]
     Dosage: 160 MCG, BID
     Dates: start: 2008
  8. VITAMIN D [Concomitant]
     Dosage: 1000 UNK, UNK
     Dates: start: 2008
  9. CLONIDINE [Concomitant]
     Dosage: .1 MG, BID
     Dates: start: 2008
  10. TRANSENE [Concomitant]
     Dosage: 7.5 MG, TID
     Dates: start: 2008
  11. DILTIAZEM [Concomitant]
     Dosage: 180 MG, QD
     Dates: start: 2008
  12. SYNTHROID [Concomitant]
     Dosage: .175 NG/KG, PER MIN
     Dates: start: 2008
  13. VICTOZA [Concomitant]
     Dosage: 18 MG, QD
     Dates: start: 2008
  14. LOSARTAN [Concomitant]
     Dosage: 100 MG, UNK
     Dates: start: 2008
  15. METFORMIN [Concomitant]
     Dosage: 750 MG, BID
     Dates: start: 2008
  16. SINGULAIR [Concomitant]
     Dosage: 10 MG, BID
     Dates: start: 2008
  17. MULTIVITAMIN [Concomitant]
     Dosage: UNK
     Dates: start: 2008
  18. RESTASIS [Concomitant]
     Dosage: 1 UNK, BID
     Dates: start: 2012
  19. FISH OIL [Concomitant]
     Dosage: UNK, QD
     Dates: start: 2008
  20. POTASSIUM [Concomitant]
     Dosage: 20 MEQ, QID
     Dates: start: 2008
  21. CRESTOR [Concomitant]
     Dosage: 20 MG, QD
     Dates: start: 2008
  22. CYMBALTA [Concomitant]
     Dosage: 90 MG, QD
     Dates: start: 2008
  23. SPIRIVA [Concomitant]
     Dosage: 18 MCG, QD
     Dates: start: 2008
  24. TORSEMIDE [Concomitant]
     Dosage: 20 MG, BID
     Dates: start: 2008
  25. TRAMADOL [Concomitant]
     Dosage: 100 MG, PRN
     Dates: start: 2008
  26. OXYCODONE [Concomitant]
     Dosage: 10 MG, PRN
     Dates: start: 2008

REACTIONS (21)
  - Asthma [Unknown]
  - Wheezing [Unknown]
  - Concussion [Unknown]
  - Ovarian mass [Not Recovered/Not Resolved]
  - Pneumonia [Recovered/Resolved]
  - Hypoxia [Recovering/Resolving]
  - Tenderness [Unknown]
  - Limb discomfort [Unknown]
  - Local swelling [Unknown]
  - Vision blurred [Not Recovered/Not Resolved]
  - Headache [Unknown]
  - Diplopia [Unknown]
  - Critical illness polyneuropathy [Unknown]
  - Muscle disorder [Unknown]
  - Gait disturbance [Unknown]
  - Confusional state [Unknown]
  - Dysgraphia [Unknown]
  - Amnesia [Recovered/Resolved]
  - Condition aggravated [Recovered/Resolved]
  - Fall [Recovered/Resolved]
  - Dyspnoea [Unknown]
